FAERS Safety Report 8522119-6 (Version None)
Quarter: 2012Q3

REPORT INFORMATION
  Report Type: 
  Country: None (occurrence: None)
  Receive Date: 20120719
  Receipt Date: 20120711
  Transmission Date: 20120928
  Serious: Yes (Hospitalization)
  Sender: FDA-Public Use
  Company Number: JP-ABBOTT-12P-087-0948536-00

PATIENT
  Sex: Female

DRUGS (14)
  1. CHIKUJOUNTANTO [Suspect]
     Indication: BRONCHITIS
     Route: 048
  2. EPPIKAJUTSUTO [Suspect]
     Indication: BRONCHITIS
     Route: 048
  3. ZITHROMAX [Suspect]
     Indication: BRONCHITIS
     Route: 048
  4. SYMBICORT [Suspect]
     Indication: BRONCHITIS
     Route: 055
  5. SYMBICORT [Suspect]
     Indication: ASTHMA
  6. SEIHAITO [Concomitant]
     Indication: BRONCHITIS
     Route: 048
  7. SYMBICORT [Suspect]
     Indication: COUGH
  8. ACETAMINOPHEN [Suspect]
     Indication: BRONCHITIS
     Route: 048
  9. CLARITIN [Suspect]
     Indication: BRONCHITIS
     Route: 048
  10. CLARITHROMYCIN [Suspect]
     Indication: BRONCHITIS
     Route: 048
     Dates: start: 20101101, end: 20101101
  11. DEXTROMETHORPHAN HYDROBROMIDE [Suspect]
     Indication: BRONCHITIS
     Route: 048
  12. MUCODYNE (L-CARBOCISTEINE) [Suspect]
     Indication: BRONCHITIS
     Route: 048
  13. BAKUMONDOTO [Suspect]
     Indication: BRONCHITIS
     Route: 048
  14. DEXTROMETHORPHAN HYDROBROMIDE [Suspect]
     Indication: BRONCHITIS
     Route: 048

REACTIONS (3)
  - RASH [None]
  - PYREXIA [None]
  - DRUG ERUPTION [None]
